FAERS Safety Report 20115317 (Version 2)
Quarter: 2021Q4

REPORT INFORMATION
  Report Type: Spontaneous
  Country: US (occurrence: US)
  Receive Date: 20211125
  Receipt Date: 20211207
  Transmission Date: 20220303
  Serious: Yes (Hospitalization)
  Sender: FDA-Public Use
  Company Number: US-TEVA-2021-US-1980029

PATIENT
  Age: 38 Year
  Sex: Female

DRUGS (4)
  1. MINOCYCLINE [Suspect]
     Active Substance: MINOCYCLINE HYDROCHLORIDE
     Indication: Acne
     Route: 065
  2. CYCLOSPORINE [Suspect]
     Active Substance: CYCLOSPORINE
     Indication: Eosinophilic myocarditis
     Route: 065
  3. MILRINONE [Concomitant]
     Active Substance: MILRINONE
     Indication: Eosinophilic myocarditis
     Route: 065
  4. PREDNISONE [Concomitant]
     Active Substance: PREDNISONE
     Indication: Eosinophilic myocarditis
     Dosage: HIGH DOSE
     Route: 065

REACTIONS (5)
  - Drug reaction with eosinophilia and systemic symptoms [Unknown]
  - Eosinophilic myocarditis [Recovering/Resolving]
  - Renal impairment [Unknown]
  - Acute respiratory failure [Unknown]
  - Left ventricular failure [Recovering/Resolving]
